FAERS Safety Report 8902746 (Version 1)
Quarter: 2012Q4

REPORT INFORMATION
  Report Type: 
  Country: US (occurrence: US)
  Receive Date: 20121112
  Receipt Date: 20121112
  Transmission Date: 20130627
  Serious: Yes (Other)
  Sender: FDA-Public Use
  Company Number: US-PFIZER INC-2012280667

PATIENT
  Age: 48 Year
  Sex: Female
  Weight: 63.49 kg

DRUGS (3)
  1. EFFEXOR XR [Suspect]
     Indication: PANIC DISORDER
     Dosage: 75 mg, 1x/day
     Route: 048
     Dates: start: 2002, end: 2011
  2. VENLAFAXINE HYDROCHLORIDE [Suspect]
     Indication: PANIC DISORDER
     Dosage: UNK
  3. PROTONIX [Concomitant]
     Indication: GASTRIC DISORDER
     Dosage: UNK

REACTIONS (1)
  - Drug ineffective [Unknown]
